FAERS Safety Report 23905471 (Version 1)
Quarter: 2024Q2

REPORT INFORMATION
  Report Type: Spontaneous
  Country: FR (occurrence: FR)
  Receive Date: 20240527
  Receipt Date: 20240527
  Transmission Date: 20240715
  Serious: Yes (Hospitalization, Other)
  Sender: FDA-Public Use
  Company Number: None

PATIENT
  Age: 78 Year
  Sex: Female
  Weight: 57 kg

DRUGS (7)
  1. ELIQUIS [Suspect]
     Active Substance: APIXABAN
     Indication: Anticoagulant therapy
     Dosage: 1 CP IN THE MORNING AND 1 CP IN THE EVENING
     Route: 048
     Dates: start: 20240429
  2. OMEPRAZOLE [Suspect]
     Active Substance: DONEPEZIL HYDROCHLORIDE\OMEPRAZOLE\OMEPRAZOLE MAGNESIUM
     Indication: Gastrooesophageal reflux disease
     Dosage: GASTRORESISTANT MICROGRANULES IN CAPSULE FORM
     Route: 048
     Dates: start: 20240429, end: 20240506
  3. CELEBREX [Suspect]
     Active Substance: CELECOXIB
     Indication: Analgesic intervention supportive therapy
     Dosage: 200 MG MORNING AND EVENING
     Route: 048
     Dates: start: 20240429, end: 20240506
  4. NEFOPAM HYDROCHLORIDE [Suspect]
     Active Substance: NEFOPAM HYDROCHLORIDE
     Indication: Analgesic intervention supportive therapy
     Dosage: 1 AMPOULE EVERY 4 HOURS ON A SUGAR?20 MG/2 ML
     Route: 048
     Dates: start: 20240429, end: 20240506
  5. DORZOLAMIDE HYDROCHLORIDE\TIMOLOL MALEATE [Concomitant]
     Active Substance: DORZOLAMIDE HYDROCHLORIDE\TIMOLOL MALEATE
     Indication: Ocular hypertension
     Dosage: 1 GTE IN THE MORNING AND 1 GTE IN THE EVENING?20 MG/ML + 5 MG/ML
     Route: 047
  6. MORPHINE SULFATE [Concomitant]
     Active Substance: MORPHINE SULFATE
     Indication: Analgesic intervention supportive therapy
     Dosage: 1 TABLET EVERY 6 HOURS FOR 24 HOURS
     Route: 048
     Dates: start: 20240429, end: 20240430
  7. BISOPROLOL CRISTER [Concomitant]
     Indication: Extrasystoles
     Dosage: 1 CP IN THE MORNING AND 1 CP IN THE EVENING
     Route: 048

REACTIONS (1)
  - Mixed liver injury [Recovering/Resolving]

NARRATIVE: CASE EVENT DATE: 20240506
